FAERS Safety Report 20910101 (Version 1)
Quarter: 2022Q2

REPORT INFORMATION
  Report Type: Other
  Country: None (occurrence: DE)
  Receive Date: 20220603
  Receipt Date: 20220603
  Transmission Date: 20220721
  Serious: Yes (Hospitalization)
  Sender: FDA-Public Use
  Company Number: DE-Ajanta Pharma USA Inc.-2129451

PATIENT
  Age: 47 Year
  Sex: Female
  Weight: 115.27 kg

DRUGS (5)
  1. METFORMIN HYDROCHLORIDE [Suspect]
     Active Substance: METFORMIN HYDROCHLORIDE
     Indication: Type 2 diabetes mellitus
  2. SITAGLIPTIN [Concomitant]
     Active Substance: SITAGLIPTIN
  3. CANDESARTAN [Concomitant]
     Active Substance: CANDESARTAN
  4. HYDROCHLOROTHIAZIDE [Concomitant]
     Active Substance: HYDROCHLOROTHIAZIDE
  5. METOPROLOL [Concomitant]
     Active Substance: METOPROLOL

REACTIONS (2)
  - Lactic acidosis [Recovered/Resolved]
  - Acute coronary syndrome [Recovered/Resolved]
